FAERS Safety Report 17769952 (Version 1)
Quarter: 2020Q2

REPORT INFORMATION
  Report Type: Spontaneous
  Country: US (occurrence: US)
  Receive Date: 20200511
  Receipt Date: 20200511
  Transmission Date: 20200714
  Serious: No
  Sender: FDA-Public Use
  Company Number: None

PATIENT
  Sex: Female

DRUGS (1)
  1. IMATINIB MESYLATE 400MG TEVA PHARMACEUTICALS USA [Suspect]
     Active Substance: IMATINIB MESYLATE
     Indication: ILL-DEFINED DISORDER
     Route: 048
     Dates: start: 202002

REACTIONS (4)
  - Alopecia [None]
  - Diarrhoea [None]
  - Oedema peripheral [None]
  - Rash [None]
